FAERS Safety Report 4759062-4 (Version None)
Quarter: 2005Q3

REPORT INFORMATION
  Report Type: 
  Country: None (occurrence: None)
  Receive Date: 20050826
  Receipt Date: 20050817
  Transmission Date: 20060218
  Serious: Yes (Other)
  Sender: FDA-Public Use
  Company Number: 2005116953

PATIENT
  Sex: Female
  Weight: 83.9154 kg

DRUGS (2)
  1. DILANTIN [Suspect]
     Indication: CONVULSION
     Dosage: 300 MG (100 MG, 2 IN 1 D), ORAL
     Route: 048
     Dates: start: 19570101
  2. PHENYTOIN [Suspect]
     Indication: CONVULSION
     Dosage: 300 MG (100 MG, 3 IN 1 D), ORAL
     Route: 048

REACTIONS (9)
  - ANTICONVULSANT DRUG LEVEL DECREASED [None]
  - CONVULSION [None]
  - DYSPEPSIA [None]
  - ORAL DISCOMFORT [None]
  - PARAESTHESIA ORAL [None]
  - PHARMACEUTICAL PRODUCT COMPLAINT [None]
  - REACTION TO COLOURING [None]
  - SKIN BURNING SENSATION [None]
  - STOMACH DISCOMFORT [None]
